FAERS Safety Report 7507012-X (Version None)
Quarter: 2011Q2

REPORT INFORMATION
  Report Type: 
  Country: None (occurrence: None)
  Receive Date: 20110526
  Receipt Date: 20110511
  Transmission Date: 20111010
  Serious: No
  Sender: FDA-Public Use
  Company Number: US-B.I. PHARMACEUTICALS,INC./RIDGEFIELD-2011-BP-12762BP

PATIENT
  Age: 53 Year
  Sex: Male

DRUGS (4)
  1. PRADAXA [Suspect]
     Indication: ATRIAL FIBRILLATION
     Route: 048
     Dates: start: 20110201
  2. SERTRALINE HYDROCHLORIDE [Concomitant]
     Indication: BLOOD TRIGLYCERIDES INCREASED
  3. ASPIRIN [Concomitant]
     Indication: PROPHYLAXIS
  4. DILTIAZEM [Concomitant]
     Indication: ATRIAL FIBRILLATION

REACTIONS (1)
  - ATRIAL FIBRILLATION [None]
